FAERS Safety Report 6773649-9 (Version None)
Quarter: 2010Q2

REPORT INFORMATION
  Report Type: 
  Country: None (occurrence: None)
  Receive Date: 20100614
  Receipt Date: 20100526
  Transmission Date: 20101027
  Serious: Yes (Disabling)
  Sender: FDA-Public Use
  Company Number: BR-1182125

PATIENT
  Sex: Male

DRUGS (1)
  1. TRAVATAN [Suspect]
     Dates: start: 20080701, end: 20080701

REACTIONS (1)
  - BLINDNESS UNILATERAL [None]
